FAERS Safety Report 9377127 (Version 1)
Quarter: 2013Q4

REPORT INFORMATION
  Report Type: Spontaneous
  Country: US (occurrence: None)
  Receive Date: 20130628
  Receipt Date: 20130628
  Transmission Date: 20140711
  Serious: Yes (Hospitalization)
  Sender: FDA-Public Use
  Company Number: None

PATIENT
  Age: 69 Year
  Sex: Female
  Weight: 45.81 kg

DRUGS (15)
  1. ERLOTINIB [Suspect]
     Indication: NON-SMALL CELL LUNG CANCER
     Dates: start: 20120328
  2. CALCIUM CARBONATE [Concomitant]
  3. COMPAZINE [Concomitant]
  4. CYTOMEL [Concomitant]
  5. DECADRON [Concomitant]
  6. DOCUSATE SODIUM [Concomitant]
  7. DYAZIDE [Concomitant]
  8. EVISTA [Concomitant]
  9. FIORINAL [Concomitant]
  10. FISH OIL CAPSULE [Concomitant]
  11. LYRICA [Concomitant]
  12. OXYCODONE [Concomitant]
  13. OXYCONTIN [Concomitant]
  14. VAGIFEM [Concomitant]
  15. VITAMIN D [Concomitant]

REACTIONS (3)
  - Hydrocephalus [None]
  - Mental status changes [None]
  - Cerebrovascular accident [None]
